FAERS Safety Report 9775617 (Version 1)
Quarter: 2013Q4

REPORT INFORMATION
  Report Type: Spontaneous
  Country: BG (occurrence: BG)
  Receive Date: 20131220
  Receipt Date: 20131220
  Transmission Date: 20140711
  Serious: Yes (Life-Threatening, Hospitalization)
  Sender: FDA-Public Use
  Company Number: PHHY2013BG146167

PATIENT
  Age: 5 Month
  Sex: Female

DRUGS (2)
  1. BRINZOLAMIDE [Suspect]
     Indication: DEVELOPMENTAL GLAUCOMA
  2. BRIMONIDINE [Suspect]
     Indication: DEVELOPMENTAL GLAUCOMA

REACTIONS (14)
  - Depressed level of consciousness [Unknown]
  - Hypotonia [Recovered/Resolved]
  - Lethargy [Recovered/Resolved]
  - Hyporesponsive to stimuli [Recovered/Resolved]
  - Pallor [Recovered/Resolved]
  - Cyanosis [Recovered/Resolved]
  - Hypopnoea [Recovered/Resolved]
  - Apnoea [Recovered/Resolved]
  - Hyporeflexia [Recovered/Resolved]
  - Hypothermia [Recovered/Resolved]
  - Toxicity to various agents [Unknown]
  - Bradycardia [Recovered/Resolved]
  - Miosis [Recovered/Resolved]
  - Blood pressure decreased [Recovered/Resolved]
